FAERS Safety Report 10283990 (Version 2)
Quarter: 2015Q3

REPORT INFORMATION
  Report Type: Spontaneous
  Country: GB (occurrence: GB)
  Receive Date: 20140708
  Receipt Date: 20150709
  Transmission Date: 20151125
  Serious: Yes (Death, Hospitalization, Other)
  Sender: FDA-Public Use
  Company Number: GB-DRREDDYS-GER/UKI/14/0041555

PATIENT
  Age: 40 Year
  Sex: Male
  Weight: 81.1 kg

DRUGS (26)
  1. LIORESAL [Suspect]
     Active Substance: BACLOFEN
     Indication: MUSCLE SPASTICITY
     Route: 037
     Dates: start: 20140204, end: 20140206
  2. LIORESAL [Suspect]
     Active Substance: BACLOFEN
     Route: 037
     Dates: start: 20140123, end: 20140127
  3. CO-DYDRAMOL [Suspect]
     Active Substance: ACETAMINOPHEN\DIHYDROCODEINE
     Indication: ANALGESIC THERAPY
     Route: 048
     Dates: start: 20140109
  4. LIORESAL [Suspect]
     Active Substance: BACLOFEN
     Route: 037
     Dates: start: 20140117, end: 20140119
  5. BACLOFEN. [Suspect]
     Active Substance: BACLOFEN
     Indication: CEREBROVASCULAR ACCIDENT
  6. LIORESAL [Suspect]
     Active Substance: BACLOFEN
     Route: 037
     Dates: start: 20140121, end: 20140203
  7. IBUPROFEN. [Suspect]
     Active Substance: IBUPROFEN
     Indication: ANALGESIC THERAPY
     Route: 048
     Dates: start: 20140109
  8. LIORESAL [Suspect]
     Active Substance: BACLOFEN
     Route: 037
     Dates: start: 20140120, end: 20140120
  9. LIORESAL [Suspect]
     Active Substance: BACLOFEN
     Route: 037
     Dates: start: 20140120
  10. LIORESAL [Suspect]
     Active Substance: BACLOFEN
     Route: 037
     Dates: start: 20140225, end: 20140225
  11. SILDENAFIL. [Suspect]
     Active Substance: SILDENAFIL
     Indication: ERECTILE DYSFUNCTION
     Route: 048
     Dates: start: 20130220
  12. LIORESAL [Suspect]
     Active Substance: BACLOFEN
     Route: 037
     Dates: start: 20140122, end: 20140122
  13. LIORESAL [Suspect]
     Active Substance: BACLOFEN
     Route: 037
     Dates: start: 20140128, end: 20140130
  14. MIRTAZAPINE. [Suspect]
     Active Substance: MIRTAZAPINE
     Indication: PRODUCT USED FOR UNKNOWN INDICATION
     Dates: start: 20140522
  15. AMLODIPINE [Suspect]
     Active Substance: AMLODIPINE BESYLATE
     Indication: HYPERTENSION
     Route: 048
     Dates: start: 20120705
  16. LIORESAL [Suspect]
     Active Substance: BACLOFEN
     Indication: CEREBROVASCULAR ACCIDENT
     Route: 037
     Dates: start: 20140207, end: 20140224
  17. BACLOFEN. [Suspect]
     Active Substance: BACLOFEN
     Indication: MUSCLE SPASTICITY
     Route: 048
     Dates: start: 20120801, end: 201401
  18. METOPROLOL [Suspect]
     Active Substance: METOPROLOL
     Indication: HYPERTENSION
     Route: 048
     Dates: start: 20120705
  19. SERTRALINE [Suspect]
     Active Substance: SERTRALINE HYDROCHLORIDE
     Indication: DEPRESSION
     Route: 048
     Dates: start: 20121210, end: 201401
  20. LIORESAL [Suspect]
     Active Substance: BACLOFEN
     Route: 037
     Dates: start: 20140121, end: 20140121
  21. LIORESAL [Suspect]
     Active Substance: BACLOFEN
     Route: 037
     Dates: start: 20140226, end: 20140310
  22. LIORESAL [Suspect]
     Active Substance: BACLOFEN
     Route: 037
     Dates: start: 20140311
  23. PARACETAMOL [Suspect]
     Active Substance: ACETAMINOPHEN
     Indication: ANALGESIC THERAPY
     Route: 048
     Dates: start: 20121112
  24. RAMIPRIL. [Suspect]
     Active Substance: RAMIPRIL
     Indication: HYPERTENSION
     Route: 048
     Dates: start: 20140113
  25. VENLAFAXINE [Suspect]
     Active Substance: VENLAFAXINE HYDROCHLORIDE
     Indication: DEPRESSION
     Route: 048
     Dates: start: 20140226
  26. ZOPICLONE [Suspect]
     Active Substance: ZOPICLONE
     Indication: INSOMNIA
     Route: 048
     Dates: start: 20130220

REACTIONS (30)
  - Mental disorder [Recovered/Resolved]
  - Petechiae [Unknown]
  - Implant site extravasation [Recovered/Resolved]
  - Pain in extremity [Unknown]
  - Pulmonary congestion [Unknown]
  - Insomnia [Unknown]
  - Onychomycosis [Unknown]
  - Hepatic steatosis [Unknown]
  - Scar [Unknown]
  - Alcohol poisoning [Fatal]
  - Stress [Recovered/Resolved]
  - Wound dehiscence [Unknown]
  - Condition aggravated [Recovered/Resolved]
  - Pain [Unknown]
  - Fall [Unknown]
  - Blood ethanol increased [Unknown]
  - Scratch [Unknown]
  - Cardiomegaly [Unknown]
  - Pulmonary oedema [Unknown]
  - Neutrophil count increased [Unknown]
  - Self injurious behaviour [Unknown]
  - Macrophages increased [Unknown]
  - Unevaluable event [Unknown]
  - Purulent discharge [Recovered/Resolved]
  - Toxicity to various agents [Unknown]
  - Erectile dysfunction [Unknown]
  - Conjunctival hyperaemia [Unknown]
  - Depression [Unknown]
  - Anxiety [Recovered/Resolved]
  - Implant site infection [Recovered/Resolved]
